FAERS Safety Report 10301090 (Version 1)
Quarter: 2014Q3

REPORT INFORMATION
  Report Type: Spontaneous
  Country: US (occurrence: None)
  Receive Date: 20140708
  Receipt Date: 20140708
  Transmission Date: 20150326
  Serious: Yes (Life-Threatening, Hospitalization)
  Sender: FDA-Public Use
  Company Number: None

PATIENT
  Age: 76 Year
  Sex: Female
  Weight: 103 kg

DRUGS (17)
  1. TRIAMINOLONE OINTMENT [Concomitant]
  2. COLLAGENASE SANTYL [Concomitant]
     Active Substance: COLLAGENASE CLOSTRIDIUM HISTOLYTICUM
  3. BUMETANIDE. [Concomitant]
     Active Substance: BUMETANIDE
  4. ZETIA [Concomitant]
     Active Substance: EZETIMIBE
  5. METOLAZONE. [Concomitant]
     Active Substance: METOLAZONE
  6. LANTUS [Concomitant]
     Active Substance: INSULIN GLARGINE
  7. WARFARIN [Concomitant]
     Active Substance: WARFARIN
  8. VITAMIN E [Concomitant]
     Active Substance: .ALPHA.-TOCOPHEROL
  9. PERIOCOLACE [Concomitant]
  10. MAALOX ANTACID [Concomitant]
     Active Substance: ALUMINUM HYDROXIDE\DIMETHICONE\MAGNESIUM HYDROXIDE
  11. LEVOTHYROXINE [Concomitant]
     Active Substance: LEVOTHYROXINE
  12. VITAMIN C [Concomitant]
     Active Substance: ASCORBIC ACID
  13. CLOBETASOL OINTMENT [Concomitant]
  14. IRON SULFATE [Concomitant]
     Active Substance: FERROUS SULFATE ANHYDROUS
  15. HUMALOG [Concomitant]
     Active Substance: INSULIN LISPRO
  16. VITAMIN D [Concomitant]
     Active Substance: CHOLECALCIFEROL
  17. FERAHEME [Suspect]
     Active Substance: FERUMOXYTOL NON-STOICHIOMETRIC MAGNETITE
     Indication: IRON DEFICIENCY ANAEMIA
     Dosage: 510 MG, TWICE 2 WEEKS APAR, INTRAVENOUS
     Route: 042
     Dates: start: 20140702

REACTIONS (3)
  - Malaise [None]
  - Unresponsive to stimuli [None]
  - Incorrect drug administration rate [None]

NARRATIVE: CASE EVENT DATE: 20140702
